FAERS Safety Report 15364525 (Version 1)
Quarter: 2018Q3

REPORT INFORMATION
  Report Type: Spontaneous
  Country: KR (occurrence: KR)
  Receive Date: 20180909
  Receipt Date: 20180909
  Transmission Date: 20181010
  Serious: Yes (Other)
  Sender: FDA-Public Use
  Company Number: PHHY2018KR087219

PATIENT
  Age: 46 Year
  Sex: Male

DRUGS (5)
  1. CEFTAZIDIME. [Suspect]
     Active Substance: CEFTAZIDIME
     Indication: NECROTISING SCLERITIS
     Dosage: 2 G, QD
     Route: 042
  2. TRIAMCINOLONE ACETONIDE. [Suspect]
     Active Substance: TRIAMCINOLONE ACETONIDE
     Dosage: UNK
     Route: 057
  3. MOXIFLOXACIN. [Suspect]
     Active Substance: MOXIFLOXACIN
     Indication: NECROTISING SCLERITIS
     Dosage: UNK UNK, QID
     Route: 065
  4. TRIAMCINOLONE ACETONIDE. [Suspect]
     Active Substance: TRIAMCINOLONE ACETONIDE
     Indication: NECROTISING SCLERITIS
     Dosage: 32 G, QD
     Route: 048
  5. LOTEPREDNOL [Suspect]
     Active Substance: LOTEPREDNOL
     Indication: NECROTISING SCLERITIS
     Dosage: 0.5 %, UNK
     Route: 061

REACTIONS (2)
  - Product use in unapproved indication [Unknown]
  - Scleral thinning [Not Recovered/Not Resolved]
